FAERS Safety Report 5525312-X (Version None)
Quarter: 2007Q4

REPORT INFORMATION
  Report Type: 
  Country: None (occurrence: None)
  Receive Date: 20071120
  Receipt Date: 20071106
  Transmission Date: 20080405
  Serious: Yes (Other)
  Sender: FDA-Public Use
  Company Number: S07-USA-05062-02

PATIENT
  Sex: Male
  Weight: 3.9123 kg

DRUGS (8)
  1. LEXAPRO [Suspect]
     Dosage: 10 MG QD TRANSPLACENTAL
     Route: 064
     Dates: end: 20070322
  2. WELLBUTRIN [Suspect]
  3. ANTIBIOTIC (NOS) [Concomitant]
  4. ACETAMINOPHEN [Concomitant]
  5. PRENATAL VITAMINS [Concomitant]
  6. VICODIN [Concomitant]
  7. PHENAZOPYRIDINE HCL TAB [Concomitant]
  8. KEFLEX [Concomitant]

REACTIONS (5)
  - BLOOD PH DECREASED [None]
  - CONGENITAL PULMONARY HYPERTENSION [None]
  - DRUG EXPOSURE DURING PREGNANCY [None]
  - INFECTION [None]
  - NEONATAL DISORDER [None]
